FAERS Safety Report 6450988-2 (Version None)
Quarter: 2009Q4

REPORT INFORMATION
  Report Type: 
  Country: None (occurrence: None)
  Receive Date: 20091123
  Receipt Date: 20091112
  Transmission Date: 20100525
  Serious: Yes (Disabling, Other)
  Sender: FDA-Public Use
  Company Number: B0600937A

PATIENT
  Sex: Female
  Weight: 57 kg

DRUGS (5)
  1. LAPATINIB [Suspect]
     Indication: BREAST CANCER
     Dosage: 1000MG PER DAY
     Route: 048
     Dates: start: 20090727, end: 20091112
  2. EPIRUBICIN [Suspect]
     Indication: BREAST CANCER
     Dosage: 145MG EVERY 3 WEEKS
     Route: 042
     Dates: start: 20090727
  3. CYCLOPHOSPHAMIDE [Suspect]
     Indication: BREAST CANCER
     Dosage: 970MG EVERY 3 WEEKS
     Route: 042
     Dates: start: 20090727
  4. HERCEPTIN [Concomitant]
  5. TAXOTERE [Concomitant]

REACTIONS (1)
  - PERICARDIAL EFFUSION [None]
